FAERS Safety Report 6311710-3 (Version None)
Quarter: 2009Q3

REPORT INFORMATION
  Report Type: 
  Country: None (occurrence: None)
  Receive Date: 20090817
  Receipt Date: 20090810
  Transmission Date: 20100115
  Serious: Yes (Other)
  Sender: FDA-Public Use
  Company Number: PHHY2009IT27943

PATIENT
  Sex: Male

DRUGS (4)
  1. TEGRETOL [Suspect]
     Indication: EPILEPSY
     Dosage: 200 MG, TID
     Route: 048
     Dates: start: 20050101, end: 20090615
  2. TEGRETOL [Suspect]
     Dosage: UNK
     Route: 048
     Dates: start: 20090616
  3. GARDENALE [Suspect]
     Indication: EPILEPSY
     Dosage: 100 MG, UNK
     Route: 048
     Dates: start: 20050101, end: 20090615
  4. GARDENALE [Suspect]
     Dosage: UNK
     Route: 048
     Dates: start: 20090616

REACTIONS (4)
  - ANTICONVULSANT DRUG LEVEL ABOVE THERAPEUTIC [None]
  - ATAXIA [None]
  - DYSARTHRIA [None]
  - VERTIGO [None]
